FAERS Safety Report 10174910 (Version 2)
Quarter: 2014Q2

REPORT INFORMATION
  Report Type: Spontaneous
  Country: IT (occurrence: IT)
  Receive Date: 20140515
  Receipt Date: 20140528
  Transmission Date: 20141212
  Serious: Yes (Death)
  Sender: FDA-Public Use
  Company Number: IT-WATSON-2014-09708

PATIENT
  Age: 77 Year
  Sex: Male
  Weight: 62 kg

DRUGS (9)
  1. CARBOPLATIN (UNKNOWN) [Suspect]
     Indication: LUNG CARCINOMA CELL TYPE UNSPECIFIED STAGE IV
     Dosage: 230 MG, CYCLICAL
     Route: 017
     Dates: start: 20140123, end: 20140411
  2. ALIMTA [Suspect]
     Indication: LUNG CARCINOMA CELL TYPE UNSPECIFIED STAGE IV
     Dosage: 650 MG, CYCLICAL
     Route: 017
     Dates: start: 20140123, end: 20140411
  3. DOBETIN                            /00056201/ [Concomitant]
     Indication: PRODUCT USED FOR UNKNOWN INDICATION
     Dosage: 1000 MCG/ML, UNKNOWN
     Route: 065
  4. CARDIOASPIRIN [Concomitant]
     Indication: PRODUCT USED FOR UNKNOWN INDICATION
     Dosage: 1 DF, UNKNOWN
     Route: 065
  5. FOLIC ACID [Concomitant]
     Indication: PRODUCT USED FOR UNKNOWN INDICATION
     Dosage: UNK UNK, UNKNOWN
     Route: 065
  6. AMLODIPINE MALEATE [Concomitant]
     Indication: PRODUCT USED FOR UNKNOWN INDICATION
     Dosage: UNK UNK, UNKNOWN
     Route: 065
  7. METOPROLOL [Concomitant]
     Indication: PRODUCT USED FOR UNKNOWN INDICATION
     Dosage: 100 MG, UNKNOWN
     Route: 065
  8. ATORVASTATIN [Concomitant]
     Indication: PRODUCT USED FOR UNKNOWN INDICATION
     Dosage: 20 MG, UNKNOWN
     Route: 065
  9. RAMIPRIL [Concomitant]
     Indication: PRODUCT USED FOR UNKNOWN INDICATION
     Dosage: 2,5 MG, UNKNOWN
     Route: 065

REACTIONS (9)
  - Respiratory failure [Fatal]
  - Anaemia [Fatal]
  - Confusional state [Fatal]
  - Dyspnoea [Fatal]
  - Thrombocytopenia [Fatal]
  - Leukopenia [Fatal]
  - Febrile neutropenia [Fatal]
  - Hyperpyrexia [Fatal]
  - Productive cough [Fatal]
